FAERS Safety Report 13885151 (Version 1)
Quarter: 2017Q3

REPORT INFORMATION
  Report Type: Report from Study
  Country: US (occurrence: US)
  Receive Date: 20170821
  Receipt Date: 20170821
  Transmission Date: 20171127
  Serious: Yes (Other)
  Sender: FDA-Public Use
  Company Number: US-PFIZER INC-2017357583

PATIENT
  Sex: Female

DRUGS (2)
  1. PALBOCICLIB [Suspect]
     Active Substance: PALBOCICLIB
     Dosage: 100 MG, QD
     Dates: start: 20170419, end: 20170616
  2. PALBOCICLIB [Suspect]
     Active Substance: PALBOCICLIB
     Dosage: 125 MG, QD
     Dates: start: 20161117, end: 20170322

REACTIONS (1)
  - Blood count abnormal [Recovered/Resolved]

NARRATIVE: CASE EVENT DATE: 20170322
